FAERS Safety Report 22226271 (Version 2)
Quarter: 2023Q2

REPORT INFORMATION
  Report Type: Spontaneous
  Country: TW (occurrence: TW)
  Receive Date: 20230419
  Receipt Date: 20230512
  Transmission Date: 20230721
  Serious: Yes (Death, Hospitalization)
  Sender: FDA-Public Use
  Company Number: TW-ABBVIE-4733907

PATIENT
  Age: 92 Year
  Sex: Male

DRUGS (1)
  1. RINVOQ [Suspect]
     Active Substance: UPADACITINIB
     Indication: Rheumatoid arthritis
     Route: 048

REACTIONS (6)
  - Death [Fatal]
  - Haematuria [Unknown]
  - Urinary tract infection [Unknown]
  - Dyspnoea [Unknown]
  - Nephritis [Unknown]
  - Pyrexia [Unknown]

NARRATIVE: CASE EVENT DATE: 20230413
